FAERS Safety Report 17760495 (Version 2)
Quarter: 2020Q2

REPORT INFORMATION
  Report Type: Spontaneous
  Country: GB (occurrence: GB)
  Receive Date: 20200508
  Receipt Date: 20200519
  Transmission Date: 20200714
  Serious: Yes (Other)
  Sender: FDA-Public Use
  Company Number: GB-TEVA-2020-GB-1231570

PATIENT
  Age: 23 Year
  Sex: Male

DRUGS (4)
  1. CYCLOPENTOLATE HCL 1% [Suspect]
     Active Substance: CYCLOPENTOLATE HYDROCHLORIDE
     Dosage: 1 %, TID, UNIT DOSE : 3 %
     Route: 065
  2. SODIUM HYALURONATE [Suspect]
     Active Substance: HYALURONATE SODIUM
     Dosage: 0.2 % EVERY 2 HOURS
     Route: 065
  3. DICLOFENAC SODIUM. [Suspect]
     Active Substance: DICLOFENAC SODIUM
     Dosage: 0.4 %, QID, UNIT DOSE : 1.6 %
     Route: 061
  4. CHLORAMPHENICOL [Suspect]
     Active Substance: CHLORAMPHENICOL
     Dosage: 1 %, QID, UNIT DOSE : 4 %
     Route: 065

REACTIONS (2)
  - Visual impairment [Recovering/Resolving]
  - Keratopathy [Recovered/Resolved with Sequelae]
